FAERS Safety Report 18714201 (Version 1)
Quarter: 2021Q1

REPORT INFORMATION
  Report Type: Spontaneous
  Country: US (occurrence: US)
  Receive Date: 20210107
  Receipt Date: 20210107
  Transmission Date: 20210419
  Serious: Yes (Hospitalization, Other)
  Sender: FDA-Public Use
  Company Number: US-TARO-2021TAR00002

PATIENT
  Age: 57 Year
  Sex: Male

DRUGS (1)
  1. WARFARIN [Suspect]
     Active Substance: WARFARIN
     Indication: EMBOLISM
     Dosage: UNK
     Route: 065

REACTIONS (2)
  - IgA nephropathy [Recovered/Resolved]
  - Kidney fibrosis [Recovered/Resolved]
